FAERS Safety Report 8916776 (Version 1)
Quarter: 2012Q4

REPORT INFORMATION
  Report Type: 
  Country: FR (occurrence: FR)
  Receive Date: 20121120
  Receipt Date: 20121120
  Transmission Date: 20130627
  Serious: Yes (Death, Other)
  Sender: FDA-Public Use
  Company Number: FR-JNJFOC-20121108446

PATIENT

DRUGS (15)
  1. DOXORUBICIN [Suspect]
     Indication: INTESTINAL T-CELL LYMPHOMA
     Dosage: day 1; ACVBP regimen
     Route: 042
  2. DOXORUBICIN [Suspect]
     Indication: INTESTINAL T-CELL LYMPHOMA
     Dosage: CHVpP regimen
     Route: 042
  3. DOXORUBICIN [Suspect]
     Indication: INTESTINAL T-CELL LYMPHOMA
     Dosage: CHOP or MACOP B regimen
     Route: 042
  4. CYCLOPHOSPHAMIDE [Suspect]
     Indication: INTESTINAL T-CELL LYMPHOMA
     Dosage: CHOP or MACOP B regimen
     Route: 065
  5. CYCLOPHOSPHAMIDE [Suspect]
     Indication: INTESTINAL T-CELL LYMPHOMA
     Dosage: CHVpP regimen
     Route: 065
  6. CYCLOPHOSPHAMIDE [Suspect]
     Indication: INTESTINAL T-CELL LYMPHOMA
     Dosage: day 1 ACVBP regimen
     Route: 065
  7. VINCRISTINE [Suspect]
     Indication: INTESTINAL T-CELL LYMPHOMA
     Dosage: CHOP or MACOP B regimen
     Route: 065
  8. PREDNISOLONE [Suspect]
     Indication: INTESTINAL T-CELL LYMPHOMA
     Dosage: CHOP or MACOP B regimen
     Route: 065
  9. PREDNISOLONE [Suspect]
     Indication: INTESTINAL T-CELL LYMPHOMA
     Dosage: day 1-5; ACVBP regimen
     Route: 065
  10. PREDNISOLONE [Suspect]
     Indication: INTESTINAL T-CELL LYMPHOMA
     Dosage: day 1-4; CHVpP regimen
     Route: 065
  11. ETOPOSIDE [Suspect]
     Indication: INTESTINAL T-CELL LYMPHOMA
     Dosage: day 1; CHVpP regimen
     Route: 065
  12. VINDESINE [Suspect]
     Indication: INTESTINAL T-CELL LYMPHOMA
     Dosage: day 1 and 5; ACVBP regimen
     Route: 065
  13. BLEOMYCIN [Suspect]
     Indication: INTESTINAL T-CELL LYMPHOMA
     Dosage: MACOP B regimen
     Route: 065
  14. BLEOMYCIN [Suspect]
     Indication: INTESTINAL T-CELL LYMPHOMA
     Dosage: day 1 and 5; ACVBP regimen
     Route: 065
  15. METHOTREXATE [Suspect]
     Indication: INTESTINAL T-CELL LYMPHOMA
     Dosage: MACOP B regimen
     Route: 065

REACTIONS (3)
  - Death [Fatal]
  - Febrile neutropenia [Unknown]
  - Enteropathy-associated T-cell lymphoma [Unknown]
